FAERS Safety Report 5419323-2 (Version None)
Quarter: 2007Q3

REPORT INFORMATION
  Report Type: 
  Country: None (occurrence: None)
  Receive Date: 20070815
  Receipt Date: 20070804
  Transmission Date: 20080115
  Serious: Yes (Other)
  Sender: FDA-Public Use
  Company Number: 2007SP015907

PATIENT
  Age: 68 Year
  Sex: Female

DRUGS (3)
  1. PEG-INTRON [Suspect]
     Indication: HEPATITIS C
     Dosage: ; SC
     Route: 058
     Dates: start: 20051101, end: 20060201
  2. RIBAVIRIN [Suspect]
     Indication: HEPATITIS C
     Dosage: ; PO
     Route: 048
     Dates: start: 20051101, end: 20060201
  3. GABAPENTIN [Concomitant]

REACTIONS (4)
  - BENIGN LUNG NEOPLASM [None]
  - LYMPHOMA [None]
  - MUSCLE SPASMS [None]
  - PAIN IN EXTREMITY [None]
